FAERS Safety Report 15355178 (Version 7)
Quarter: 2021Q4

REPORT INFORMATION
  Report Type: Spontaneous
  Country: US (occurrence: US)
  Receive Date: 20180906
  Receipt Date: 20211129
  Transmission Date: 20220303
  Serious: Yes (Hospitalization)
  Sender: FDA-Public Use
  Company Number: US-PFIZER INC-2018360622

PATIENT
  Age: 63 Year
  Sex: Female

DRUGS (1)
  1. LYRICA [Suspect]
     Active Substance: PREGABALIN
     Indication: Pain
     Dosage: 100 MG, 2X/DAY

REACTIONS (6)
  - COVID-19 [Unknown]
  - Drug ineffective [Unknown]
  - Feeling abnormal [Unknown]
  - Migraine [Unknown]
  - Memory impairment [Unknown]
  - Bradykinesia [Unknown]
